FAERS Safety Report 8489036-1 (Version None)
Quarter: 2012Q3

REPORT INFORMATION
  Report Type: 
  Country: None (occurrence: None)
  Receive Date: 20120705
  Receipt Date: 20120629
  Transmission Date: 20120928
  Serious: Yes (Hospitalization, Disabling, Other)
  Sender: FDA-Public Use
  Company Number: US-PFIZER INC-2012055219

PATIENT
  Sex: Male

DRUGS (1)
  1. CHANTIX [Suspect]
     Indication: SMOKING CESSATION THERAPY
     Dosage: UNK
     Dates: start: 20090601, end: 20090701

REACTIONS (9)
  - PSYCHOTIC DISORDER [None]
  - SUICIDAL IDEATION [None]
  - AGGRESSION [None]
  - SUICIDE ATTEMPT [None]
  - ANXIETY [None]
  - INSOMNIA [None]
  - DEPRESSION [None]
  - INTENTIONAL OVERDOSE [None]
  - ABNORMAL DREAMS [None]
